FAERS Safety Report 8614107-6 (Version None)
Quarter: 2012Q3

REPORT INFORMATION
  Report Type: 
  Country: None (occurrence: None)
  Receive Date: 20120823
  Receipt Date: 20120814
  Transmission Date: 20120928
  Serious: Yes (Other)
  Sender: FDA-Public Use
  Company Number: US-BAYER-2012-085238

PATIENT
  Sex: Female

DRUGS (1)
  1. YAZ [Suspect]
     Dosage: UNK
     Route: 064
     Dates: start: 20090801, end: 20100119

REACTIONS (2)
  - SMALL FOR DATES BABY [None]
  - UMBILICAL CORD VASCULAR DISORDER [None]
